FAERS Safety Report 9382003 (Version 4)
Quarter: 2013Q4

REPORT INFORMATION
  Report Type: Spontaneous
  Country: DK (occurrence: JP)
  Receive Date: 20130703
  Receipt Date: 20131121
  Transmission Date: 20140711
  Serious: Yes (Congenital Anomaly, Other)
  Sender: FDA-Public Use
  Company Number: JP-FRI-1000046398

PATIENT
  Age: 38 Year
  Sex: Male
  Weight: 60 kg

DRUGS (4)
  1. LEXAPRO [Suspect]
     Indication: DEPRESSION
     Dosage: 10 MG
     Route: 048
     Dates: start: 20130219, end: 20130305
  2. LEXAPRO [Suspect]
     Dosage: 20 MG
     Route: 048
     Dates: start: 20130306, end: 20130717
  3. LEXAPRO [Suspect]
     Indication: DEPRESSION
     Dosage: 20 MG
     Route: 048
     Dates: start: 20130306, end: 20130717
  4. MEILAX [Concomitant]
     Indication: ANXIETY
     Dosage: 2 MG
     Route: 048
     Dates: start: 20110812

REACTIONS (2)
  - Sperm concentration decreased [Recovered/Resolved]
  - Spermatozoa progressive motility decreased [Recovered/Resolved]
